FAERS Safety Report 8339928-9 (Version None)
Quarter: 2012Q2

REPORT INFORMATION
  Report Type: 
  Country: None (occurrence: None)
  Receive Date: 20120507
  Receipt Date: 20120503
  Transmission Date: 20120825
  Serious: Yes (Death, Hospitalization)
  Sender: FDA-Public Use
  Company Number: SE-SANOFI-AVENTIS-2012SA031082

PATIENT
  Age: 70 Year
  Sex: Male

DRUGS (9)
  1. DICLOFENAC [Concomitant]
  2. TAXOTERE [Suspect]
     Dosage: ROUTE:INF
     Dates: start: 20120308, end: 20120308
  3. FENTANYL CITRATE [Concomitant]
  4. ALVEDON [Concomitant]
  5. KALCIPOS [Concomitant]
  6. TAXOTERE [Suspect]
     Indication: PROSTATE CANCER
     Dosage: STRENGTH: 20MG/MLROUTE: INF
     Dates: start: 20111215, end: 20111215
  7. ASPIRIN [Concomitant]
  8. PREDNISOLONE [Concomitant]
  9. HORMONE ANTAGONISTS AND RELATED AGENTS [Concomitant]

REACTIONS (2)
  - DYSPNOEA [None]
  - INTERSTITIAL LUNG DISEASE [None]
